FAERS Safety Report 26075657 (Version 2)
Quarter: 2025Q4

REPORT INFORMATION
  Report Type: Spontaneous
  Country: US (occurrence: US)
  Receive Date: 20251121
  Receipt Date: 20251204
  Transmission Date: 20260118
  Serious: No
  Sender: KARYOPHARM THERAPEUTICS
  Company Number: US-KARYOPHARM-2025KPT100975

PATIENT

DRUGS (7)
  1. SELINEXOR [Suspect]
     Active Substance: SELINEXOR
     Indication: Benign ovarian tumour
     Dosage: 80 MG WEEKLY
     Route: 048
     Dates: start: 20251115
  2. ARMOUR THYROID [Concomitant]
     Active Substance: THYROID, PORCINE
  3. CLOBETASOL [Concomitant]
     Active Substance: CLOBETASOL
  4. BETAMETHASONE\CLOTRIMAZOLE [Concomitant]
     Active Substance: BETAMETHASONE\CLOTRIMAZOLE
  5. DEXAMETHASONE [Concomitant]
     Active Substance: DEXAMETHASONE
  6. OLANZAPINE [Concomitant]
     Active Substance: OLANZAPINE
  7. VENTOLIN HFA [Concomitant]
     Active Substance: ALBUTEROL SULFATE

REACTIONS (6)
  - Loss of consciousness [Recovered/Resolved]
  - Nausea [Recovering/Resolving]
  - Vomiting [Recovered/Resolved]
  - Fatigue [Recovering/Resolving]
  - Constipation [Not Recovered/Not Resolved]
  - Off label use [Unknown]

NARRATIVE: CASE EVENT DATE: 20250101
